FAERS Safety Report 4523994-2 (Version None)
Quarter: 2004Q4

REPORT INFORMATION
  Report Type: 
  Country: None (occurrence: None)
  Receive Date: 20041210
  Receipt Date: 20041111
  Transmission Date: 20050328
  Serious: Yes (Other)
  Sender: FDA-Public Use
  Company Number: BR-ABBOTT-04P-020-0280479-00

PATIENT
  Age: 62 Year
  Sex: Male
  Weight: 72 kg

DRUGS (4)
  1. VERAPAMIL [Suspect]
     Indication: ARRHYTHMIA
     Route: 048
     Dates: start: 20040501
  2. ACETYLSALICYLIC ACID [Concomitant]
     Indication: PLATELET AGGREGATION
     Route: 048
  3. BROMAZEPAM [Concomitant]
     Indication: ANXIETY
     Route: 048
  4. AFRIN MOISTURIZING SALINE MIST [Concomitant]
     Indication: RHINITIS
     Route: 045

REACTIONS (3)
  - COUGH [None]
  - FATIGUE [None]
  - PULMONARY FIBROSIS [None]
